FAERS Safety Report 14508629 (Version 1)
Quarter: 2018Q1

REPORT INFORMATION
  Report Type: Spontaneous
  Country: US (occurrence: US)
  Receive Date: 20180209
  Receipt Date: 20180209
  Transmission Date: 20180509
  Serious: Yes (Other)
  Sender: FDA-Public Use
  Company Number: US-ROCHE-2063787

PATIENT
  Age: 66 Year
  Sex: Female

DRUGS (8)
  1. CARBOPLATIN. [Concomitant]
     Active Substance: CARBOPLATIN
     Indication: OVARIAN EPITHELIAL CANCER
     Route: 065
     Dates: start: 201310, end: 201403
  2. TAXOL [Concomitant]
     Active Substance: PACLITAXEL
     Dosage: NO
     Route: 065
     Dates: start: 201310, end: 201403
  3. TAXOL [Concomitant]
     Active Substance: PACLITAXEL
     Indication: OVARIAN EPITHELIAL CANCER
     Dosage: NO
     Route: 065
     Dates: start: 201508, end: 201512
  4. CISPLATIN. [Concomitant]
     Active Substance: CISPLATIN
     Indication: OVARIAN EPITHELIAL CANCER
     Route: 065
     Dates: start: 201701, end: 201701
  5. CARBOPLATIN. [Concomitant]
     Active Substance: CARBOPLATIN
     Route: 065
     Dates: start: 201508, end: 201512
  6. AVASTIN [Suspect]
     Active Substance: BEVACIZUMAB
     Indication: OVARIAN EPITHELIAL CANCER
     Dosage: 6 CYCLES
     Route: 065
     Dates: start: 201508, end: 201512
  7. CARBOPLATIN. [Concomitant]
     Active Substance: CARBOPLATIN
     Route: 065
     Dates: start: 201702, end: 201706
  8. NIRAPARIB [Concomitant]
     Active Substance: NIRAPARIB
     Indication: OVARIAN EPITHELIAL CANCER
     Dosage: NO
     Route: 065
     Dates: start: 201710, end: 201712

REACTIONS (1)
  - Ovarian epithelial cancer recurrent [Unknown]

NARRATIVE: CASE EVENT DATE: 201612
